FAERS Safety Report 4690750-4 (Version None)
Quarter: 2005Q2

REPORT INFORMATION
  Report Type: 
  Country: None (occurrence: None)
  Receive Date: 20050615
  Receipt Date: 20050603
  Transmission Date: 20051028
  Serious: Yes (Hospitalization)
  Sender: FDA-Public Use
  Company Number: FR-BRISTOL-MYERS SQUIBB COMPANY-12995924

PATIENT
  Age: 53 Year
  Sex: Female

DRUGS (3)
  1. GLUCOPHAGE [Suspect]
     Indication: DIABETES MELLITUS
     Route: 048
  2. TRIATEC [Concomitant]
  3. DIAMICRON [Concomitant]

REACTIONS (2)
  - ABDOMINAL PAIN [None]
  - SCIATICA [None]
